FAERS Safety Report 13379828 (Version 2)
Quarter: 2017Q2

REPORT INFORMATION
  Report Type: Spontaneous
  Country: US (occurrence: US)
  Receive Date: 20170328
  Receipt Date: 20170426
  Transmission Date: 20170830
  Serious: No
  Sender: FDA-Public Use
  Company Number: US-ELI_LILLY_AND_COMPANY-US201703008122

PATIENT
  Age: 60 Year
  Sex: Female

DRUGS (2)
  1. TRULICITY [Suspect]
     Active Substance: DULAGLUTIDE
     Dosage: 0.75 MG, UNKNOWN
     Route: 065
     Dates: start: 201703
  2. TRULICITY [Suspect]
     Active Substance: DULAGLUTIDE
     Indication: OFF LABEL USE
     Dosage: 1.5 MG, UNKNOWN
     Route: 065
     Dates: start: 201609

REACTIONS (4)
  - Off label use [Unknown]
  - Weight decreased [Unknown]
  - Pain [Recovering/Resolving]
  - Arthralgia [Recovered/Resolved]

NARRATIVE: CASE EVENT DATE: 201609
